FAERS Safety Report 6027308-0 (Version None)
Quarter: 2009Q1

REPORT INFORMATION
  Report Type: 
  Country: None (occurrence: None)
  Receive Date: 20090105
  Receipt Date: 20090102
  Transmission Date: 20090719
  Serious: Yes (Other)
  Sender: FDA-Public Use
  Company Number: A0762071A

PATIENT
  Age: 21 Year
  Sex: Male

DRUGS (2)
  1. LAMICTAL [Suspect]
     Indication: DEPRESSION
     Dosage: 25MG PER DAY
     Route: 048
     Dates: start: 20081206, end: 20081216
  2. NO CONCURRENT MEDICATION [Concomitant]

REACTIONS (6)
  - AGGRESSION [None]
  - ANGER [None]
  - DEPRESSED MOOD [None]
  - DEPRESSION [None]
  - ELEVATED MOOD [None]
  - IRRITABILITY [None]
